FAERS Safety Report 8361840 (Version 2)
Quarter: 2013Q1

REPORT INFORMATION
  Report Type: Report from Study
  Country: RO (occurrence: RO)
  Receive Date: 20120130
  Receipt Date: 20130307
  Transmission Date: 20140127
  Serious: Yes (Death)
  Sender: FDA-Public Use
  Company Number: RO-UCBSA-050142

PATIENT
  Age: 70 Year
  Sex: Female
  Weight: 50 kg

DRUGS (9)
  1. NEUPRO [Suspect]
     Indication: PARKINSON^S DISEASE
     Route: 062
     Dates: start: 20101025, end: 20110818
  2. NEUPRO [Suspect]
     Indication: PARKINSON^S DISEASE
     Route: 062
     Dates: start: 20100922, end: 20101024
  3. MADOPAR [Concomitant]
     Indication: PARKINSON^S DISEASE
     Dates: start: 20100920, end: 20101024
  4. MADOPAR [Concomitant]
     Indication: PARKINSON^S DISEASE
     Dosage: FREQUENCY-3/4,1/2,1/2
     Dates: start: 20101025, end: 20110817
  5. MADOPAR [Concomitant]
     Indication: PARKINSON^S DISEASE
     Dates: start: 20110818, end: 20111225
  6. ENALAPRIL [Concomitant]
     Indication: HYPERTENSION
     Dates: end: 20111225
  7. PANTOPRAZOLE [Concomitant]
     Indication: GASTRIC ULCER
     Dates: start: 20100929, end: 20111225
  8. SIMVASTATIN [Concomitant]
     Indication: HYPERCHOLESTEROLAEMIA
     Dates: start: 20101030, end: 20111225
  9. RIVASTIGMINUM [Concomitant]
     Indication: DEMENTIA
     Dates: start: 20111108, end: 20111225

REACTIONS (1)
  - Myocardial infarction [Fatal]
